FAERS Safety Report 9804170 (Version 1)
Quarter: 2014Q1

REPORT INFORMATION
  Report Type: Spontaneous
  Country: JP (occurrence: JP)
  Receive Date: 20140108
  Receipt Date: 20140108
  Transmission Date: 20141002
  Serious: Yes (Death, Hospitalization)
  Sender: FDA-Public Use
  Company Number: PHHY2014JP000820

PATIENT
  Age: 70 Year
  Sex: Male

DRUGS (9)
  1. OXALIPLATIN [Suspect]
     Indication: METASTASES TO LIVER
     Dosage: 85 MG/M2, UNK
     Route: 042
  2. OXALIPLATIN [Suspect]
     Indication: COLON CANCER
  3. IRINOTECAN [Suspect]
     Indication: METASTASES TO LIVER
     Dosage: 150 MG/M2, UNK
     Route: 042
  4. IRINOTECAN [Suspect]
     Indication: COLON CANCER
  5. 5-FLUOROURACIL [Suspect]
     Indication: METASTASES TO LIVER
     Dosage: 400 MG/M2, UNK
     Route: 042
  6. 5-FLUOROURACIL [Suspect]
     Indication: COLON CANCER
     Dosage: 2400 MG/M2, UNK
     Route: 042
  7. FOLINIC ACID [Suspect]
     Indication: METASTASES TO LIVER
     Dosage: 200 MG/M2, UNK
     Route: 042
  8. FOLINIC ACID [Suspect]
     Indication: COLON CANCER
  9. BEVACIZUMAB [Concomitant]
     Dosage: 330 MG/M2, UNK

REACTIONS (7)
  - Metastases to liver [Fatal]
  - Metastases to lymph nodes [Fatal]
  - Pulmonary oedema [Recovered/Resolved]
  - Chills [Recovered/Resolved]
  - Cough [Recovered/Resolved]
  - Dyspnoea [Recovered/Resolved]
  - Drug ineffective [Unknown]
